FAERS Safety Report 15836909 (Version 1)
Quarter: 2019Q1

REPORT INFORMATION
  Report Type: Spontaneous
  Country: RU (occurrence: RU)
  Receive Date: 20190117
  Receipt Date: 20190117
  Transmission Date: 20190417
  Serious: Yes (Other)
  Sender: FDA-Public Use
  Company Number: RU-ALVOGEN-2019-ALVOGEN-098108

PATIENT
  Age: 28 Year
  Sex: Male

DRUGS (2)
  1. PERAMPANEL [Interacting]
     Active Substance: PERAMPANEL
     Indication: LENNOX-GASTAUT SYNDROME
     Dosage: ()
  2. LEVETIRACETAM. [Suspect]
     Active Substance: LEVETIRACETAM
     Indication: LENNOX-GASTAUT SYNDROME

REACTIONS (2)
  - Hostility [Recovered/Resolved]
  - Drug interaction [Recovered/Resolved]
